FAERS Safety Report 6218229-9 (Version None)
Quarter: 2009Q2

REPORT INFORMATION
  Report Type: 
  Country: None (occurrence: None)
  Receive Date: 20090604
  Receipt Date: 20090604
  Transmission Date: 20091009
  Serious: Yes (Hospitalization)
  Sender: FDA-Public Use
  Company Number: None

PATIENT
  Sex: Male
  Weight: 66 kg

DRUGS (2)
  1. DIVALPROEX SODIUM [Suspect]
     Indication: BIPOLAR DISORDER
     Dosage: 250 MG 3/DAY PO
     Route: 048
     Dates: start: 20090215, end: 20090408
  2. DIVALPROEX SODIUM [Suspect]
     Indication: MAJOR DEPRESSION
     Dosage: 250 MG 3/DAY PO
     Route: 048
     Dates: start: 20090215, end: 20090408

REACTIONS (3)
  - ASCITES [None]
  - HYPERGLYCAEMIA [None]
  - PANCREATITIS [None]
